FAERS Safety Report 19846904 (Version 1)
Quarter: 2021Q3

REPORT INFORMATION
  Report Type: Spontaneous
  Country: US (occurrence: US)
  Receive Date: 20210917
  Receipt Date: 20210917
  Transmission Date: 20211014
  Serious: No
  Sender: FDA-Public Use
  Company Number: None

PATIENT
  Age: 77 Year
  Sex: Female
  Weight: 91.9 kg

DRUGS (11)
  1. APAP [Concomitant]
     Active Substance: ACETAMINOPHEN
     Dates: start: 20210820, end: 20210825
  2. APIXABAN [Concomitant]
     Active Substance: APIXABAN
     Dates: start: 20210820, end: 20210910
  3. CLONIDINE. [Concomitant]
     Active Substance: CLONIDINE
     Dates: start: 20210820, end: 20210906
  4. BARICITINIB. [Suspect]
     Active Substance: BARICITINIB
     Indication: COVID-19
     Route: 048
     Dates: start: 20210824, end: 20210825
  5. GLIMEPERIDE [Concomitant]
     Active Substance: GLIMEPIRIDE
     Dates: start: 20210821, end: 20210830
  6. METOPROLOL. [Concomitant]
     Active Substance: METOPROLOL
     Dates: start: 20210821, end: 20210910
  7. ASA [Concomitant]
     Active Substance: ASPIRIN
     Dates: start: 20210821, end: 20210904
  8. DEXAMETHASONE. [Concomitant]
     Active Substance: DEXAMETHASONE
     Dates: start: 20210823, end: 20210905
  9. EZETIMIBE. [Concomitant]
     Active Substance: EZETIMIBE
     Dates: start: 20210820, end: 20210903
  10. PEPCID [Concomitant]
     Active Substance: FAMOTIDINE
     Dates: start: 20210823, end: 20210909
  11. LIPITOR [Concomitant]
     Active Substance: ATORVASTATIN CALCIUM
     Dates: start: 20210821, end: 20210904

REACTIONS (2)
  - Alanine aminotransferase increased [None]
  - Aspartate aminotransferase increased [None]

NARRATIVE: CASE EVENT DATE: 20210825
